FAERS Safety Report 17749017 (Version 1)
Quarter: 2020Q2

REPORT INFORMATION
  Report Type: Spontaneous
  Country: NL (occurrence: NL)
  Receive Date: 20200506
  Receipt Date: 20200506
  Transmission Date: 20200714
  Serious: Yes (Other)
  Sender: FDA-Public Use
  Company Number: NL-TEVA-2020-NL-1228809

PATIENT
  Age: 86 Year
  Sex: Male
  Weight: 95 kg

DRUGS (8)
  1. VASEXTEN (BARNIDIPINE) [Concomitant]
     Dosage: CAPSULE WITH REGULATED RELEASE ?THERAPY START AND END  DATE ASKED BUT UNKNOWN
  2. LEVOFLOXACINE [Suspect]
     Active Substance: LEVOFLOXACIN
     Indication: BACTERIAL INFECTION
     Dosage: 500 MILLIGRAM DAILY;
     Dates: start: 20200324, end: 20200401
  3. SYMBICORT [Concomitant]
     Active Substance: BUDESONIDE\FORMOTEROL FUMARATE DIHYDRATE
     Dosage: 200/6 MICROGRAMS PER DOSE?THERAPY START AND END  DATE ASKED BUT UNKNOWN
  4. CANDESARTAN/HYDROCHLOORTHIAZIDE [Concomitant]
     Dosage: 16/12,5 MG (MILLIGRAM)? THERAPY START AND END  DATE ASKED BUT UNKNOWN
  5. OMEPRAZOL [Concomitant]
     Active Substance: OMEPRAZOLE
     Dosage: THERAPY START AND END  DATE ASKED BUT UNKNOWN
  6. DUTASTERIDE. [Concomitant]
     Active Substance: DUTASTERIDE
     Dosage: THERAPY START AND END  DATE ASKED BUT UNKNOWN
  7. ALFUZOSINE [Concomitant]
     Active Substance: ALFUZOSIN HYDROCHLORIDE
     Dosage: TABLET WITH REGULATED RELEASE, THERAPY START AND END  DATE ASKED BUT UNKNOWN
  8. BISOPROLOL [Concomitant]
     Active Substance: BISOPROLOL
     Dosage: THERAPY START AND END  DATE ASKED BUT UNKNOWN

REACTIONS (2)
  - Oedema peripheral [Not Recovered/Not Resolved]
  - Arthralgia [Not Recovered/Not Resolved]

NARRATIVE: CASE EVENT DATE: 20200330
